FAERS Safety Report 18521444 (Version 1)
Quarter: 2020Q4

REPORT INFORMATION
  Report Type: Spontaneous
  Country: US (occurrence: US)
  Receive Date: 20201119
  Receipt Date: 20201119
  Transmission Date: 20210114
  Serious: Yes (Other)
  Sender: FDA-Public Use
  Company Number: US-EMCURE PHARMACEUTICALS LTD-2017-EPL-0173

PATIENT
  Age: 66 Year
  Sex: Male

DRUGS (9)
  1. SULFAMETHOXAZOLE, TRIMETHOPRIM [Suspect]
     Active Substance: SULFAMETHOXAZOLE\TRIMETHOPRIM
     Indication: URINARY TRACT INFECTION
     Dosage: FREQUENCY -2 IN 1 DAYS  TWICE DAILY
  2. SULFAMETHOXAZOLE, TRIMETHOPRIM [Suspect]
     Active Substance: SULFAMETHOXAZOLE\TRIMETHOPRIM
     Indication: PNEUMOCYSTIS JIROVECII PNEUMONIA
     Dosage: FREQUENCY -2 IN 6 HOURS  2 TABS BY MOUTH EVERY 6 HOURS (15.6 MG/KG/DAY OF TRIMETHOPRIM)
     Route: 065
  3. VINCRISTINE [Suspect]
     Active Substance: VINCRISTINE
     Indication: B-CELL LYMPHOMA
     Dosage: 4 CYCLES
  4. ACYCLOVIR. [Suspect]
     Active Substance: ACYCLOVIR
     Indication: B-CELL LYMPHOMA
     Route: 065
  5. SULFAMETHOXAZOLE, TRIMETHOPRIM [Suspect]
     Active Substance: SULFAMETHOXAZOLE\TRIMETHOPRIM
     Indication: PROPHYLAXIS
     Dosage: FREQUENCY - IN 1 DAYS  DAILY (1.9 MG/KG/DAY)
  6. CYCLOPHOSPHAMIDE. [Suspect]
     Active Substance: CYCLOPHOSPHAMIDE
     Indication: B-CELL LYMPHOMA
     Dosage: 4 CYCLES
  7. RITUXIMAB. [Suspect]
     Active Substance: RITUXIMAB
     Indication: B-CELL LYMPHOMA
     Dosage: 4 CYCLES
  8. HYDROXYDAUNORUBICIN [Suspect]
     Active Substance: DOXORUBICIN
     Indication: B-CELL LYMPHOMA
     Dosage: 4 CYCLES
  9. PREDNISOLONE. [Suspect]
     Active Substance: PREDNISOLONE
     Indication: B-CELL LYMPHOMA
     Dosage: 4 CYCLES

REACTIONS (6)
  - Immunosuppression [Unknown]
  - Myoclonus [Recovered/Resolved]
  - Postural tremor [Recovered/Resolved]
  - Asterixis [Recovered/Resolved]
  - Thrombocytopenia [Recovered/Resolved]
  - Pneumocystis jirovecii pneumonia [Unknown]

NARRATIVE: CASE EVENT DATE: 201304
